FAERS Safety Report 24914957 (Version 1)
Quarter: 2025Q1

REPORT INFORMATION
  Report Type: Spontaneous
  Country: BR (occurrence: BR)
  Receive Date: 20250203
  Receipt Date: 20250203
  Transmission Date: 20250409
  Serious: Yes (Other)
  Sender: NOVO NORDISK
  Company Number: BR-NOVOPROD-1320818

PATIENT
  Age: 64 Year
  Sex: Female
  Weight: 104 kg

DRUGS (2)
  1. WEGOVY [Suspect]
     Active Substance: SEMAGLUTIDE
     Indication: Weight control
     Dosage: 0.25 MG, QW
     Route: 058
     Dates: start: 20241023
  2. WEGOVY [Suspect]
     Active Substance: SEMAGLUTIDE
     Dosage: 05 MG, QW (SINGLE DOSE)
     Route: 058

REACTIONS (2)
  - Cholecystectomy [Unknown]
  - Influenza [Unknown]
